FAERS Safety Report 5311881-1 (Version None)
Quarter: 2007Q2

REPORT INFORMATION
  Report Type: 
  Country: None (occurrence: None)
  Receive Date: 20070430
  Receipt Date: 20060512
  Transmission Date: 20071010
  Serious: No
  Sender: FDA-Public Use
  Company Number: 2006UW06914

PATIENT
  Age: 62 Year
  Sex: Male
  Weight: 99.8 kg

DRUGS (3)
  1. NEXIUM [Suspect]
     Indication: GASTROOESOPHAGEAL REFLUX DISEASE
     Route: 048
     Dates: start: 20060401
  2. VYTORIN [Concomitant]
  3. ALEVE [Concomitant]

REACTIONS (1)
  - CHOKING SENSATION [None]
